FAERS Safety Report 13003012 (Version 3)
Quarter: 2016Q4

REPORT INFORMATION
  Report Type: Spontaneous
  Country: CH (occurrence: CH)
  Receive Date: 20161206
  Receipt Date: 20161230
  Transmission Date: 20170207
  Serious: Yes (Death, Hospitalization)
  Sender: FDA-Public Use
  Company Number: CH-UNITED THERAPEUTICS-UNT-2016-018435

PATIENT
  Sex: Male

DRUGS (8)
  1. TORSEMIDE. [Concomitant]
     Active Substance: TORSEMIDE
     Indication: PRODUCT USED FOR UNKNOWN INDICATION
  2. REMODULIN [Suspect]
     Active Substance: TREPROSTINIL
     Indication: PULMONARY ARTERIAL HYPERTENSION
     Dosage: 0.032 ?G/KG, CONTINUING
     Route: 041
     Dates: start: 20160907, end: 20161202
  3. RIOCIGUAT [Concomitant]
     Active Substance: RIOCIGUAT
     Indication: PRODUCT USED FOR UNKNOWN INDICATION
  4. MACITENTAN [Concomitant]
     Active Substance: MACITENTAN
     Indication: PRODUCT USED FOR UNKNOWN INDICATION
  5. REMODULIN [Suspect]
     Active Substance: TREPROSTINIL
     Indication: RENAL FAILURE
  6. REMODULIN [Suspect]
     Active Substance: TREPROSTINIL
     Indication: ASCITES
  7. PHENPROCOUMON [Concomitant]
     Active Substance: PHENPROCOUMON
     Indication: PRODUCT USED FOR UNKNOWN INDICATION
  8. REMODULIN [Suspect]
     Active Substance: TREPROSTINIL
     Indication: RIGHT VENTRICULAR FAILURE

REACTIONS (8)
  - Impaired healing [Fatal]
  - Acute kidney injury [Fatal]
  - Ascites [Fatal]
  - Product use issue [Unknown]
  - Sepsis [Fatal]
  - Septic shock [Fatal]
  - Cardiogenic shock [Fatal]
  - Postoperative wound infection [Fatal]

NARRATIVE: CASE EVENT DATE: 2016
